FAERS Safety Report 6940701-4 (Version None)
Quarter: 2010Q3

REPORT INFORMATION
  Report Type: 
  Country: None (occurrence: None)
  Receive Date: 20100825
  Receipt Date: 20100818
  Transmission Date: 20110219
  Serious: Yes (Hospitalization, Other)
  Sender: FDA-Public Use
  Company Number: SI-JNJFOC-20100803163

PATIENT
  Sex: Female
  Weight: 45 kg

DRUGS (8)
  1. SIMPONI [Suspect]
     Indication: RHEUMATOID ARTHRITIS
     Route: 058
  2. METHYLPREDNISOLONE [Concomitant]
     Indication: RHEUMATOID ARTHRITIS
  3. METHOTREXATE [Concomitant]
     Indication: RHEUMATOID ARTHRITIS
  4. ALFACALCIDOL [Concomitant]
     Indication: OSTEOPOROSIS
  5. CALCIUM CARBONATE [Concomitant]
     Indication: OSTEOPOROSIS
  6. DICLOFENAC [Concomitant]
  7. PANTOPRAZOLE [Concomitant]
  8. BONIVA [Concomitant]

REACTIONS (3)
  - ANGINA UNSTABLE [None]
  - CEREBRAL ISCHAEMIA [None]
  - TROPONIN INCREASED [None]
